FAERS Safety Report 6619064-X (Version None)
Quarter: 2010Q1

REPORT INFORMATION
  Report Type: 
  Country: None (occurrence: None)
  Receive Date: 20100308
  Receipt Date: 20100217
  Transmission Date: 20100710
  Serious: Yes (Hospitalization, Other)
  Sender: FDA-Public Use
  Company Number: US-ROCHE-651451

PATIENT
  Sex: Female
  Weight: 81.6 kg

DRUGS (14)
  1. CAPECITABINE [Suspect]
     Route: 048
     Dates: start: 20090220, end: 20091002
  2. DILAUDID [Concomitant]
     Indication: PAIN
     Dosage: FREQUENCY: PRN
     Route: 048
  3. COMPAZINE [Concomitant]
  4. FRAGMIN [Concomitant]
  5. ASPIRIN [Concomitant]
  6. PAXIL [Concomitant]
     Route: 048
  7. PLAVIX [Concomitant]
  8. ZETIA [Concomitant]
     Route: 048
  9. METOPROLOL TARTRATE [Concomitant]
     Route: 048
  10. PHENERGAN HCL [Concomitant]
     Indication: NAUSEA
     Dosage: FREQUENCY: PRN
     Route: 048
  11. KEPPRA [Concomitant]
  12. FENTANYL [Concomitant]
     Indication: PAIN
     Route: 062
  13. PRILOSEC [Concomitant]
     Route: 048
  14. NIASPAN [Concomitant]
     Route: 048

REACTIONS (5)
  - CEREBROVASCULAR ACCIDENT [None]
  - DRUG INEFFECTIVE [None]
  - FALL [None]
  - HAEMORRHAGE [None]
  - MALIGNANT NEOPLASM PROGRESSION [None]
